FAERS Safety Report 8617563 (Version 8)
Quarter: 2012Q4

REPORT INFORMATION
  Report Type: 
  Country: US (occurrence: US)
  Receive Date: 20120615
  Receipt Date: 20121012
  Transmission Date: 20130627
  Serious: Yes (Hospitalization)
  Sender: FDA-Public Use
  Company Number: US-PFIZER INC-2012136539

PATIENT
  Age: 72 Year
  Sex: Male
  Weight: 112.5 kg

DRUGS (22)
  1. AXITINIB [Suspect]
     Indication: PROSTATE CANCER
     Dosage: 5 mg, 2x/day (2 weeks on, 1 week off)
     Route: 048
     Dates: start: 20120502, end: 20120605
  2. FOSAMAX [Concomitant]
     Indication: OSTEOPOROSIS
     Dosage: 70 mg, weekly
     Route: 048
     Dates: start: 2010
  3. ACETYLSALICYLIC ACID [Concomitant]
     Dosage: 325 mg, 1x/day
     Route: 048
     Dates: end: 201204
  4. FERROUS SULFATE [Concomitant]
     Indication: SUPPLEMENTATION THERAPY
     Dosage: 325 mg, 1x/day
     Route: 048
     Dates: start: 2010, end: 20120612
  5. NORCO [Concomitant]
     Indication: BACK PAIN
     Dosage: 5mg/325mg, 4x/day, as needed
     Route: 048
     Dates: start: 201204
  6. IBUPROFEN [Concomitant]
     Indication: BACK PAIN
     Dosage: 200 mg, as needed, every 4-6 hours
     Route: 048
     Dates: start: 2009, end: 20120612
  7. LASIX [Concomitant]
     Indication: OEDEMA
     Dosage: 60 mg, 1x/day
     Route: 048
     Dates: start: 201202, end: 20120612
  8. LUPRON [Concomitant]
     Dosage: 30 mg, every 4 months
     Route: 030
     Dates: start: 2001
  9. SYNTHROID [Concomitant]
     Indication: HYPOTHYROIDISM
     Dosage: 125 ug, 1x/day
     Route: 048
     Dates: end: 20120430
  10. SYNTHROID [Concomitant]
     Dosage: 100 ug, 1x/day
     Route: 048
     Dates: start: 20120501
  11. METOPROLOL TARTRATE [Concomitant]
     Indication: HYPERTENSION
     Dosage: 50 mg, 2x/day
     Route: 048
     Dates: start: 2011
  12. FISH OIL [Concomitant]
     Indication: SUPPLEMENTATION THERAPY
     Dosage: 1000 mg, 1x/day
     Route: 048
     Dates: start: 2010, end: 20120612
  13. CALCIUM [Concomitant]
     Indication: SUPPLEMENTATION THERAPY
     Dosage: 1 tab, as needed
     Route: 048
     Dates: start: 2011, end: 20120612
  14. LOSARTAN [Concomitant]
     Indication: HYPERTENSION
     Dosage: 25 mg, 1x/day
     Route: 048
     Dates: start: 20120503, end: 20120531
  15. LOSARTAN [Concomitant]
     Dosage: 50 mg, 1x/day
     Route: 048
     Dates: start: 20120531
  16. ASA [Concomitant]
     Indication: PROPHYLAXIS
     Dosage: 81 mg, 1x/day
     Route: 048
     Dates: start: 20120503
  17. NTG [Concomitant]
     Indication: CHEST PAIN
     Dosage: 0.4 as needed
     Route: 058
     Dates: start: 20120503
  18. SMZ-TMP [Concomitant]
     Indication: URINARY TRACT INFECTION
     Dosage: 800/100, 2x/day
     Route: 048
     Dates: start: 20120508, end: 20120515
  19. COMPAZINE [Concomitant]
     Indication: NAUSEA
     Dosage: 10 mg, as needed
     Route: 048
     Dates: start: 20120508
  20. LORAZEPAM [Concomitant]
     Indication: NAUSEA
     Dosage: 1 mg, as needed
     Route: 048
     Dates: start: 20120516
  21. CLARITIN [Concomitant]
     Indication: HYPERSENSITIVITY
     Dosage: 10 mg, as needed
     Route: 048
     Dates: start: 20120516
  22. TAMSULOSIN [Concomitant]
     Indication: BENIGN PROSTATIC HYPERPLASIA
     Dosage: 0.4 mg, 1x/day
     Route: 048
     Dates: start: 20120423

REACTIONS (3)
  - Chest pain [Recovered/Resolved]
  - Hypertension [Recovered/Resolved]
  - Transient ischaemic attack [Not Recovered/Not Resolved]
